FAERS Safety Report 10062883 (Version 2)
Quarter: 2014Q2

REPORT INFORMATION
  Report Type: Spontaneous
  Country: SI (occurrence: SI)
  Receive Date: 20140407
  Receipt Date: 20140407
  Transmission Date: 20141212
  Serious: Yes (Hospitalization, Other)
  Sender: FDA-Public Use
  Company Number: PHHY2014SI029230

PATIENT
  Sex: Male

DRUGS (10)
  1. QUETIAPINE [Suspect]
     Indication: MENTAL DISORDER
     Dosage: 700 MG, QD
  2. BISOPROLOL [Suspect]
     Dosage: 2.5 MG, QD
  3. CARBAMAZEPINE [Suspect]
     Indication: MENTAL DISORDER
     Dosage: 600 MG, QD
  4. HALOPERIDOL [Suspect]
     Indication: MENTAL DISORDER
     Dosage: 9 MG, QD
  5. NITRAZEPAM [Suspect]
     Indication: MENTAL DISORDER
     Dosage: 5 MG, QD (IF NEEDED)
  6. FOLIC ACID [Suspect]
     Dosage: 5 MG, QD
  7. ACETYLSALICYLIC ACID [Suspect]
     Dosage: 100 MG, QD
  8. VALPROIC ACID [Suspect]
     Indication: MENTAL DISORDER
     Dosage: UNK UKN, UNK
  9. OXCARBAZEPINE [Suspect]
     Indication: MENTAL DISORDER
     Dosage: UNK UKN, UNK
  10. LITHIUM [Suspect]
     Indication: MENTAL DISORDER
     Dosage: UNK UKN, UNK

REACTIONS (4)
  - Gamma-glutamyltransferase increased [Recovering/Resolving]
  - Hyponatraemia [Recovering/Resolving]
  - Mania [Recovering/Resolving]
  - Drug ineffective [Unknown]
